FAERS Safety Report 7110913-8 (Version None)
Quarter: 2010Q4

REPORT INFORMATION
  Report Type: 
  Country: None (occurrence: None)
  Receive Date: 20101118
  Receipt Date: 20101109
  Transmission Date: 20110411
  Serious: Yes (Hospitalization)
  Sender: FDA-Public Use
  Company Number: IT-ASTRAZENECA-2010SE53282

PATIENT
  Age: 77 Year
  Sex: Female

DRUGS (4)
  1. TENORMIN [Suspect]
     Indication: HYPERTENSION
     Route: 048
     Dates: start: 20101029, end: 20101102
  2. ENAPREN [Concomitant]
     Route: 048
  3. XANAX [Concomitant]
     Route: 048
  4. AGGRENOX [Concomitant]
     Dosage: 200,25 MG/DAY
     Route: 048

REACTIONS (3)
  - ACUTE PULMONARY OEDEMA [None]
  - CARDIAC FAILURE [None]
  - MYOCARDIAL DEPRESSION [None]
